FAERS Safety Report 9032648 (Version 1)
Quarter: 2013Q1

REPORT INFORMATION
  Report Type: Spontaneous
  Country: US (occurrence: US)
  Receive Date: 20130125
  Receipt Date: 20130125
  Transmission Date: 20140127
  Serious: Yes (Hospitalization, Other)
  Sender: FDA-Public Use
  Company Number: US-ELI_LILLY_AND_COMPANY-US201201006931

PATIENT
  Age: 27 Year
  Sex: Male

DRUGS (9)
  1. BYETTA [Suspect]
     Dosage: 5 UG, BID
     Route: 058
  2. METOPROLOL [Concomitant]
     Dosage: UNK, QD
  3. TRICOR [Concomitant]
     Dosage: UNK, QD
  4. LISINOPRIL                              /USA/ [Concomitant]
     Dosage: UNK, QD
  5. COLACE [Concomitant]
     Dosage: UNK, BID
  6. NEXIUM                                  /USA/ [Concomitant]
     Dosage: UNK, QD
  7. METFORMIN [Concomitant]
     Dosage: UNK, EACH EVENING
  8. FLUOXETINE [Concomitant]
  9. AMITRIPTYLINE [Concomitant]

REACTIONS (4)
  - Pancreatitis [Recovered/Resolved]
  - Pancreatic pseudocyst [Recovered/Resolved]
  - Diabetic ketoacidosis [Recovered/Resolved]
  - Hypertriglyceridaemia [Recovering/Resolving]
